FAERS Safety Report 21156350 (Version 1)
Quarter: 2022Q3

REPORT INFORMATION
  Report Type: Spontaneous
  Country: US (occurrence: US)
  Receive Date: 20220801
  Receipt Date: 20220801
  Transmission Date: 20221027
  Serious: No
  Sender: FDA-Public Use
  Company Number: US-PADAGIS-2022PAD00217

PATIENT

DRUGS (1)
  1. PERMETHRIN [Suspect]
     Active Substance: PERMETHRIN
     Indication: Vaginal disorder
     Dosage: ONE TO TWO TIMES A DAY
     Route: 067
     Dates: start: 20220521

REACTIONS (2)
  - Wrong product administered [Unknown]
  - Product use in unapproved indication [Unknown]
